FAERS Safety Report 7249077-9 (Version None)
Quarter: 2011Q1

REPORT INFORMATION
  Report Type: 
  Country: None (occurrence: None)
  Receive Date: 20110128
  Receipt Date: 20100924
  Transmission Date: 20110831
  Serious: Yes (Hospitalization)
  Sender: FDA-Public Use
  Company Number: US-BAYER-201024821NA

PATIENT
  Sex: Female
  Weight: 90 kg

DRUGS (21)
  1. FLUCONAZOLE [Concomitant]
     Route: 065
  2. PREDNISONE [Concomitant]
     Route: 065
  3. TERCONAZOLE [Concomitant]
     Route: 048
  4. OCELLA [Suspect]
     Indication: PRODUCT USED FOR UNKNOWN INDICATION
     Dosage: USE 2000-2010. DISCREPANCY IN MEDICAL RECORDS: JUL-08 TO -AUG-09 (OR 2000-2010).
     Route: 048
  5. TRIMETHOPRIM [Concomitant]
     Route: 065
  6. METRONIDAZOLE [Concomitant]
     Route: 065
  7. FERROUS SULFATE TAB [Concomitant]
     Route: 065
  8. YASMIN [Suspect]
     Indication: CONTRACEPTION
     Dosage: USE: 2007 60 OCT-2009. DISCREPANCY IN MEDICAL RECORDS: YASMIN SEP-2009. PRESCRIPTION: 20-OCT-2009
     Route: 048
  9. BETAMETHASONE [Concomitant]
     Route: 065
  10. OXYCODONE HCL [Concomitant]
     Route: 065
  11. TRIAMCINOLONE [Concomitant]
     Route: 065
  12. CEFDINIR [Concomitant]
     Dosage: 300 MG, BID
     Route: 048
     Dates: start: 20091025
  13. IBUPROFEN [Concomitant]
     Route: 048
  14. YAZ [Suspect]
     Indication: CONTRACEPTION
  15. FAMCICLOVIR [Concomitant]
     Route: 065
  16. ZOVIRAX [Concomitant]
     Route: 065
  17. VALTREX [Concomitant]
     Dosage: DAILY DOSE 500 MG
     Route: 048
     Dates: start: 20090101
  18. DOXYCYCLINE HYCLATE [Concomitant]
     Route: 065
  19. YAZ [Suspect]
     Indication: ACNE
     Dosage: USED IN 2007. DISCREPANCY IN MEDICAL RECORDS: OCT-2009.
     Route: 048
  20. AMOXICILLIN [Concomitant]
     Route: 065
  21. TRIMETHOPRIM [Concomitant]
     Route: 065

REACTIONS (10)
  - BLOOD IRON DECREASED [None]
  - NECK PAIN [None]
  - PRODUCTIVE COUGH [None]
  - NORMOCHROMIC NORMOCYTIC ANAEMIA [None]
  - MUSCULOSKELETAL PAIN [None]
  - CHEST PAIN [None]
  - PULMONARY EMBOLISM [None]
  - DYSPNOEA [None]
  - INJURY [None]
  - PULMONARY INFARCTION [None]
